FAERS Safety Report 18952654 (Version 3)
Quarter: 2021Q1

REPORT INFORMATION
  Report Type: Spontaneous
  Country: US (occurrence: US)
  Receive Date: 20210301
  Receipt Date: 20210316
  Transmission Date: 20210420
  Serious: Yes (Life-Threatening, Other)
  Sender: FDA-Public Use
  Company Number: US-PFIZER INC-2021194827

PATIENT
  Age: 69 Year
  Sex: Female

DRUGS (1)
  1. BUPIVACAINE HCL [Suspect]
     Active Substance: BUPIVACAINE HYDROCHLORIDE
     Indication: SPINAL ANAESTHESIA
     Dosage: 1.6 ML, (.75%)
     Route: 008

REACTIONS (3)
  - Vasospasm [Not Recovered/Not Resolved]
  - Paraplegia [Not Recovered/Not Resolved]
  - Meningitis [Not Recovered/Not Resolved]
